FAERS Safety Report 18565355 (Version 2)
Quarter: 2021Q4

REPORT INFORMATION
  Report Type: Spontaneous
  Country: US (occurrence: US)
  Receive Date: 20201201
  Receipt Date: 20211005
  Transmission Date: 20220303
  Serious: Yes (Other)
  Sender: FDA-Public Use
  Company Number: US-MYLANLABS-2020M1097733

PATIENT
  Age: 72 Year
  Sex: Female
  Weight: 113 kg

DRUGS (1)
  1. ESTRADIOL [Suspect]
     Active Substance: ESTRADIOL
     Indication: Urinary tract infection
     Dosage: 0.01 PERCENT, Q3W (INSERT 1/4 APPLICATOR FILL VAGINALLY THREE TIMES A WEEK)
     Route: 067
     Dates: start: 20191001, end: 20191130

REACTIONS (15)
  - Endometrial adenocarcinoma [Not Recovered/Not Resolved]
  - Invasive lobular breast carcinoma [Not Recovered/Not Resolved]
  - Heart rate increased [Unknown]
  - Fatigue [Unknown]
  - Vulvovaginal pruritus [Recovered/Resolved with Sequelae]
  - Vulvovaginal burning sensation [Unknown]
  - Application site pain [Unknown]
  - Stress [Unknown]
  - Gastrooesophageal reflux disease [Unknown]
  - Joint injury [Unknown]
  - Limb injury [Unknown]
  - COVID-19 [Unknown]
  - Anxiety [Unknown]
  - Off label use [Unknown]
  - Candida infection [Unknown]

NARRATIVE: CASE EVENT DATE: 20200214
